FAERS Safety Report 23330498 (Version 3)
Quarter: 2024Q3

REPORT INFORMATION
  Report Type: Spontaneous
  Country: US (occurrence: US)
  Receive Date: 20231222
  Receipt Date: 20240724
  Transmission Date: 20241017
  Serious: No
  Sender: SANOFI AVENTIS
  Company Number: US-SA-SAC20231215000988

PATIENT
  Age: 64 Year
  Sex: Female

DRUGS (6)
  1. DUPIXENT [Suspect]
     Active Substance: DUPILUMAB
     Indication: Dermatitis atopic
     Dosage: 300 MG, QOW
     Route: 058
     Dates: start: 2023
  2. DUPIXENT [Suspect]
     Active Substance: DUPILUMAB
     Dosage: 300 MG, QOW
     Route: 058
  3. LEXAPRO [Concomitant]
     Active Substance: ESCITALOPRAM OXALATE
     Dosage: UNK
  4. PRIMIDONE [Concomitant]
     Active Substance: PRIMIDONE
  5. SIMVASTATIN [Concomitant]
     Active Substance: SIMVASTATIN
  6. XANAX [Concomitant]
     Active Substance: ALPRAZOLAM

REACTIONS (11)
  - Peripheral swelling [Unknown]
  - Skin burning sensation [Unknown]
  - Erythema [Unknown]
  - Pruritus [Unknown]
  - Sinusitis [Unknown]
  - Skin haemorrhage [Unknown]
  - Skin exfoliation [Not Recovered/Not Resolved]
  - Fatigue [Unknown]
  - Depressed mood [Unknown]
  - Disturbance in attention [Unknown]
  - Memory impairment [Unknown]

NARRATIVE: CASE EVENT DATE: 20231212
